FAERS Safety Report 24720283 (Version 1)
Quarter: 2024Q4

REPORT INFORMATION
  Report Type: Spontaneous
  Country: RS (occurrence: RS)
  Receive Date: 20241211
  Receipt Date: 20241211
  Transmission Date: 20250115
  Serious: Yes (Hospitalization, Other)
  Sender: AMGEN
  Company Number: RS-AMGEN-SRBSP2024239112

PATIENT
  Age: 20 Year
  Sex: Female

DRUGS (1)
  1. NPLATE [Suspect]
     Active Substance: ROMIPLOSTIM
     Indication: Thrombocytopenia
     Dosage: 10 MICROGRAM/KILOGRAM
     Route: 065
     Dates: start: 202406

REACTIONS (3)
  - Pneumonitis [Unknown]
  - Clostridium colitis [Unknown]
  - Rectal haemorrhage [Unknown]
